FAERS Safety Report 9536882 (Version 6)
Quarter: 2014Q3

REPORT INFORMATION
  Report Type: Spontaneous
  Country: US (occurrence: US)
  Receive Date: 20130919
  Receipt Date: 20140718
  Transmission Date: 20150326
  Serious: Yes (Hospitalization)
  Sender: FDA-Public Use
  Company Number: US-BAYER-2013-112889

PATIENT
  Age: 23 Year
  Sex: Female
  Weight: 74.83 kg

DRUGS (5)
  1. MIRENA [Suspect]
     Active Substance: LEVONORGESTREL
     Indication: CONTRACEPTION
     Dosage: 20 MCG/24HR, CONT
     Route: 015
     Dates: start: 20090902, end: 20101028
  2. TOPAMAX [Concomitant]
     Active Substance: TOPIRAMATE
     Indication: ARACHNOID CYST
     Dosage: 100 MG, DAILY
  3. TIZANIDINE [Concomitant]
     Active Substance: TIZANIDINE
     Indication: ARACHNOID CYST
     Dosage: 4 MG, HS
  4. ALBUTEROL. [Concomitant]
     Active Substance: ALBUTEROL
     Dosage: UNK, PRN
  5. FLAGYL [Concomitant]
     Active Substance: METRONIDAZOLE\METRONIDAZOLE HYDROCHLORIDE

REACTIONS (11)
  - Anxiety [None]
  - Device dislocation [None]
  - Infection [None]
  - Uterine perforation [None]
  - Blood pressure decreased [None]
  - Device issue [None]
  - Abdominal pain [None]
  - Emotional distress [None]
  - Depression [None]
  - White blood cell count increased [None]
  - Injury [None]

NARRATIVE: CASE EVENT DATE: 2009
